FAERS Safety Report 8296657-8 (Version None)
Quarter: 2012Q2

REPORT INFORMATION
  Report Type: 
  Country: None (occurrence: None)
  Receive Date: 20120418
  Receipt Date: 20120418
  Transmission Date: 20120825
  Serious: Yes (Life-Threatening, Hospitalization)
  Sender: FDA-Public Use
  Company Number: None

PATIENT
  Age: 69 Year
  Sex: Male
  Weight: 70 kg

DRUGS (1)
  1. CABAZITAXEL [Suspect]
     Indication: PROSTATE CANCER METASTATIC
     Dates: start: 20111130, end: 20120220

REACTIONS (5)
  - UPPER GASTROINTESTINAL HAEMORRHAGE [None]
  - HELICOBACTER TEST POSITIVE [None]
  - GASTRITIS [None]
  - DUODENITIS [None]
  - GASTRIC ULCER [None]
